FAERS Safety Report 16985065 (Version 1)
Quarter: 2019Q4

REPORT INFORMATION
  Report Type: Spontaneous
  Country: IN (occurrence: IN)
  Receive Date: 20191101
  Receipt Date: 20191101
  Transmission Date: 20200122
  Serious: Yes (Hospitalization)
  Sender: FDA-Public Use
  Company Number: IN-ENDO PHARMACEUTICALS INC-2019-109150

PATIENT
  Age: 25 Year
  Sex: Male

DRUGS (4)
  1. OLANZAPINE. [Suspect]
     Active Substance: OLANZAPINE
     Dosage: TITRATED UPWARDS FROM 5MG DAILY TO 15MG DAILY OVER 14 DAYS
     Route: 048
  2. OLANZAPINE. [Suspect]
     Active Substance: OLANZAPINE
     Indication: SCHIZOPHRENIA
     Dosage: TITRATED UPWARDS FROM 5MG DAILY TO 15MG DAILY OVER 14 DAYS
     Route: 048
  3. FLUPHENAZINE [Concomitant]
     Active Substance: FLUPHENAZINE
     Indication: SCHIZOPHRENIA
     Dosage: 12.5 MG, DAILY ON DAY 7 POST ADMISSION
     Route: 065
  4. FLUPHENAZINE [Concomitant]
     Active Substance: FLUPHENAZINE
     Dosage: 25 MG, Q2W
     Route: 065

REACTIONS (1)
  - Pancreatitis necrotising [Recovered/Resolved]
